FAERS Safety Report 21166064 (Version 1)
Quarter: 2022Q3

REPORT INFORMATION
  Report Type: Spontaneous
  Country: US (occurrence: None)
  Receive Date: 20220802
  Receipt Date: 20220802
  Transmission Date: 20221027
  Serious: Yes (Death)
  Sender: FDA-Public Use
  Company Number: None

PATIENT
  Age: 50 Year
  Sex: Male

DRUGS (5)
  1. PREZISTA [Suspect]
     Active Substance: DARUNAVIR ETHANOLATE
     Indication: HIV infection
     Dosage: FREQUENCY : TWICE A DAY;?
     Route: 048
     Dates: start: 20220711, end: 20220801
  2. TIVICAY [Suspect]
     Active Substance: DOLUTEGRAVIR SODIUM
     Indication: HIV infection
     Dosage: FREQUENCY : DAILY;?
     Route: 048
     Dates: start: 20200522, end: 20220801
  3. PIFELTRO [Concomitant]
     Active Substance: DORAVIRINE
     Dates: start: 20200522, end: 20220801
  4. Ritonavir 100 mg [Concomitant]
     Dates: start: 20220711, end: 20220801
  5. Atovaquone 150mg/5ml [Concomitant]
     Dates: start: 20200522, end: 20220801

REACTIONS (1)
  - Death [None]

NARRATIVE: CASE EVENT DATE: 20220801
